FAERS Safety Report 9263320 (Version 1)
Quarter: 2013Q2

REPORT INFORMATION
  Report Type: Spontaneous
  Country: US (occurrence: US)
  Receive Date: 20130430
  Receipt Date: 20130430
  Transmission Date: 20140414
  Serious: No
  Sender: FDA-Public Use
  Company Number: US-ABBOTT-12P-163-0999838-00

PATIENT
  Age: 64 Year
  Sex: Female
  Weight: 65.83 kg

DRUGS (1)
  1. CREON [Suspect]
     Indication: DYSPEPSIA
     Dosage: 2 CAPS PER MEAL

REACTIONS (4)
  - Pruritus [Not Recovered/Not Resolved]
  - Glucose tolerance impaired [Unknown]
  - Diabetes mellitus [Unknown]
  - Off label use [Unknown]
